FAERS Safety Report 7533195-1 (Version None)
Quarter: 2011Q2

REPORT INFORMATION
  Report Type: 
  Country: None (occurrence: None)
  Receive Date: 20110608
  Receipt Date: 20090411
  Transmission Date: 20111010
  Serious: Yes (Death)
  Sender: FDA-Public Use
  Company Number: US-BAYER-200918202NA

PATIENT
  Age: 67 Year
  Sex: Male
  Weight: 116 kg

DRUGS (23)
  1. FUROSEMIDE [Concomitant]
  2. VERSED [Concomitant]
     Dosage: UNK
     Route: 042
     Dates: start: 20010814, end: 20010814
  3. VALIUM [Concomitant]
  4. TRASYLOL [Suspect]
     Dosage: 50 ML, Q1HR
     Dates: start: 20010814, end: 20010814
  5. ACETYLSALICYLIC ACID SRT [Concomitant]
  6. PROTONIX [Concomitant]
     Dosage: UNK
     Dates: start: 20010101, end: 20050101
  7. ZOCOR [Concomitant]
     Dosage: UNK
     Dates: start: 20010101, end: 20050101
  8. LORTAB [Concomitant]
     Dosage: UNK
     Dates: start: 20010813, end: 20010906
  9. INSULIN [Concomitant]
     Dosage: UNK
     Dates: start: 19860101, end: 20050101
  10. NIPRIDE [Concomitant]
     Dosage: UNK
     Route: 042
     Dates: start: 20010814, end: 20010814
  11. LEVAQUIN [Concomitant]
     Dosage: UNK
     Dates: start: 20010813, end: 20010906
  12. ANCEF [Concomitant]
     Dosage: UNK
     Route: 042
     Dates: start: 20010814, end: 20010814
  13. LANOXIN [Concomitant]
     Dosage: UNK
     Route: 042
     Dates: start: 20010814, end: 20010814
  14. TRASYLOL [Suspect]
     Indication: CORONARY ARTERY BYPASS
     Dosage: 200 ML, ONCE
     Route: 040
     Dates: start: 20010814, end: 20010814
  15. NILSTAT [Concomitant]
     Dosage: UNK
     Dates: start: 20010801, end: 20010807
  16. HEPARIN [Concomitant]
     Dosage: UNK
     Route: 042
     Dates: start: 20010814, end: 20010814
  17. LIDOCAINE [Concomitant]
     Dosage: UNK
     Route: 042
     Dates: start: 20010814, end: 20010814
  18. VANCOMYCIN [Concomitant]
     Dosage: UNK
     Route: 042
     Dates: start: 20010814, end: 20010814
  19. PROTAMINE SULFATE [Concomitant]
     Dosage: UNK
     Route: 042
     Dates: start: 20010814, end: 20010814
  20. AVANDIA [Concomitant]
     Dosage: UNK
     Dates: start: 20010101
  21. LOVENOX [Concomitant]
  22. DIOVAN [Concomitant]
     Dosage: UNK
     Dates: start: 20010101, end: 20050101
  23. SUCCINYLCHOLINE CHLORIDE [Concomitant]
     Dosage: UNK
     Route: 042
     Dates: start: 20010814, end: 20010814

REACTIONS (5)
  - RENAL FAILURE ACUTE [None]
  - INJURY [None]
  - PAIN [None]
  - EMOTIONAL DISTRESS [None]
  - UNEVALUABLE EVENT [None]
